FAERS Safety Report 6135494-7 (Version None)
Quarter: 2009Q1

REPORT INFORMATION
  Report Type: 
  Country: None (occurrence: None)
  Receive Date: 20090327
  Receipt Date: 20090318
  Transmission Date: 20090719
  Serious: Yes (Life-Threatening, Hospitalization)
  Sender: FDA-Public Use
  Company Number: B0523260A

PATIENT
  Sex: Male

DRUGS (2)
  1. ZELITREX [Suspect]
     Route: 048
     Dates: start: 20080501, end: 20080520
  2. TEGRETOL [Suspect]

REACTIONS (1)
  - STEVENS-JOHNSON SYNDROME [None]
